FAERS Safety Report 17807711 (Version 1)
Quarter: 2020Q2

REPORT INFORMATION
  Report Type: Report from Study
  Country: GB (occurrence: GB)
  Receive Date: 20200520
  Receipt Date: 20200520
  Transmission Date: 20200714
  Serious: Yes (Other)
  Sender: FDA-Public Use
  Company Number: GB-CELGENEUS-GBR-20200505041

PATIENT
  Sex: Female

DRUGS (2)
  1. OTEZLA [Suspect]
     Active Substance: APREMILAST
     Indication: PSORIASIS
     Dosage: 30 MILLIGRAM
     Route: 048
  2. OTEZLA [Suspect]
     Active Substance: APREMILAST
     Dosage: D1 10MG, D2 10MG /10MG, D3  10MG/20MG, D4 20MG/20MG,?D5 20MG/30MG, D6 TO 14 30MG/ 30MG
     Route: 048

REACTIONS (1)
  - Neoplasm [Not Recovered/Not Resolved]
